FAERS Safety Report 12194045 (Version 1)
Quarter: 2016Q1

REPORT INFORMATION
  Report Type: Spontaneous
  Country: FR (occurrence: FR)
  Receive Date: 20160321
  Receipt Date: 20160321
  Transmission Date: 20160526
  Serious: Yes (Other)
  Sender: FDA-Public Use
  Company Number: FR-009507513-1502FRA005494

PATIENT
  Age: 35 Year
  Sex: Female

DRUGS (4)
  1. PREZISTA [Concomitant]
     Active Substance: DARUNAVIR ETHANOLATE
     Indication: HIV INFECTION
     Dosage: 1 DF IN THE MORNING AND 1 DF IN THE EVENING
     Dates: start: 201210
  2. INTELENCE [Concomitant]
     Active Substance: ETRAVIRINE
     Indication: HIV INFECTION
     Dosage: LDF THE MORNING AND 1 DF IN THE EVENING
     Dates: start: 201210
  3. ISENTRESS [Suspect]
     Active Substance: RALTEGRAVIR POTASSIUM
     Indication: HIV INFECTION
     Dosage: 1 TABLET (400MG) IN THE MORNING, 1 TABLET (400MG) IN THE EVENING
     Route: 048
     Dates: start: 201210
  4. NORVIR [Concomitant]
     Active Substance: RITONAVIR
     Indication: HIV INFECTION
     Dosage: 1 DF IN THE MORNING AND 1 DF IN THE EVENING
     Dates: start: 201210

REACTIONS (2)
  - Abortion spontaneous [Recovered/Resolved]
  - Maternal exposure during pregnancy [Recovered/Resolved]

NARRATIVE: CASE EVENT DATE: 20150307
